FAERS Safety Report 25704306 (Version 1)
Quarter: 2025Q3

REPORT INFORMATION
  Report Type: Report from Study
  Country: CA (occurrence: CA)
  Receive Date: 20250820
  Receipt Date: 20250820
  Transmission Date: 20251021
  Serious: Yes (Death)
  Sender: ABBVIE
  Company Number: CA-ABBVIE-6421998

PATIENT
  Age: 91 Year
  Sex: Male

DRUGS (1)
  1. LUPRON [Suspect]
     Active Substance: LEUPROLIDE ACETATE
     Indication: Prostate cancer
     Dosage: 22.5 MG PRE-FILLED SYRINGE Q 3 MONTHS
     Route: 065
     Dates: start: 20241114

REACTIONS (2)
  - Death [Fatal]
  - Hospice care [Fatal]

NARRATIVE: CASE EVENT DATE: 20250813
